FAERS Safety Report 5940977-6 (Version None)
Quarter: 2008Q4

REPORT INFORMATION
  Report Type: 
  Country: None (occurrence: None)
  Receive Date: 20081104
  Receipt Date: 20081028
  Transmission Date: 20090506
  Serious: Yes (Other)
  Sender: FDA-Public Use
  Company Number: PHHY2008BR26145

PATIENT
  Age: 38 Year
  Sex: Female
  Weight: 62 kg

DRUGS (5)
  1. TOFRANIL [Suspect]
     Indication: HEADACHE
     Dosage: 1 TAB EVERY 12 HOURS
     Route: 048
     Dates: start: 20081001
  2. TOFRANIL [Suspect]
     Indication: IRRITABILITY
  3. TOFRANIL [Suspect]
     Indication: NERVOUSNESS
  4. PHENOBARBITAL TAB [Concomitant]
     Indication: IRRITABILITY
     Dosage: 1/2 TAB A DAY
     Route: 048
     Dates: start: 19840101
  5. PHENOBARBITAL TAB [Concomitant]
     Indication: NERVOUSNESS

REACTIONS (5)
  - HYPOTONIA [None]
  - INSOMNIA [None]
  - IRRITABILITY [None]
  - NERVOUSNESS [None]
  - VULVOVAGINAL DRYNESS [None]
